FAERS Safety Report 14137071 (Version 1)
Quarter: 2017Q4

REPORT INFORMATION
  Report Type: Spontaneous
  Country: NZ (occurrence: NZ)
  Receive Date: 20171027
  Receipt Date: 20171027
  Transmission Date: 20180321
  Serious: Yes (Hospitalization, Other)
  Sender: FDA-Public Use
  Company Number: NZ-BAYER-2017-081226

PATIENT
  Age: 78 Year
  Sex: Male
  Weight: 82 kg

DRUGS (11)
  1. GOSERELIN [Concomitant]
     Active Substance: GOSERELIN
     Indication: PROSTATE CANCER
     Dosage: UNK
     Dates: start: 201004
  2. GLYCERYL TRINITRATE [Concomitant]
     Active Substance: NITROGLYCERIN
     Indication: VASODILATION PROCEDURE
     Dosage: UNK
     Dates: start: 20170226
  3. BISOPROLOL FUMARATE. [Concomitant]
     Active Substance: BISOPROLOL FUMARATE
     Indication: HYPERTENSION
     Dosage: UNK
     Dates: start: 20170301
  4. PARACETAMOL [Concomitant]
     Active Substance: ACETAMINOPHEN
     Indication: PAIN
     Dosage: UNK
     Dates: start: 20170226
  5. PARACETAMOL [Concomitant]
     Active Substance: ACETAMINOPHEN
     Indication: DISCOMFORT
  6. ATORVASTATIN [Concomitant]
     Active Substance: ATORVASTATIN
     Indication: HYPERLIPIDAEMIA
     Dosage: UNK
     Dates: start: 20170226
  7. COLECALCIFEROL [Concomitant]
     Active Substance: CHOLECALCIFEROL
     Indication: VITAMIN SUPPLEMENTATION
     Dosage: UNK
     Dates: start: 201304
  8. CLOPIDOGREL [Concomitant]
     Active Substance: CLOPIDOGREL BISULFATE
     Indication: ANTIPLATELET THERAPY
     Dosage: 75 MG, QD
     Route: 048
     Dates: start: 20170328
  9. ASPIRIN. [Suspect]
     Active Substance: ASPIRIN
     Indication: PLATELET AGGREGATION INHIBITION
     Dosage: 100 MG, QD
     Route: 048
     Dates: start: 199706
  10. TICAGRELOR. [Interacting]
     Active Substance: TICAGRELOR
     Indication: PLATELET AGGREGATION INHIBITION
     Dosage: 90 MG, BID
     Route: 048
     Dates: start: 20170226, end: 20170328
  11. GLYCERYL TRINITRATE [Concomitant]
     Active Substance: NITROGLYCERIN
     Indication: CHEST PAIN

REACTIONS (6)
  - Urinary retention [None]
  - Invasive ductal breast carcinoma [None]
  - Haematuria [Recovered/Resolved]
  - Haemorrhage urinary tract [Recovered/Resolved]
  - Labelled drug-drug interaction medication error [None]
  - Drug administration error [None]

NARRATIVE: CASE EVENT DATE: 2017
